FAERS Safety Report 6098761-1 (Version None)
Quarter: 2009Q1

REPORT INFORMATION
  Report Type: 
  Country: None (occurrence: None)
  Receive Date: 20090302
  Receipt Date: 20090218
  Transmission Date: 20090719
  Serious: Yes (Hospitalization, Other)
  Sender: FDA-Public Use
  Company Number: IN-JNJFOC-20090204719

PATIENT

DRUGS (1)
  1. INFLIXIMAB [Suspect]
     Indication: HEPATITIS ALCOHOLIC
     Route: 042

REACTIONS (1)
  - PULMONARY TUBERCULOSIS [None]
